FAERS Safety Report 5100993-3 (Version None)
Quarter: 2006Q3

REPORT INFORMATION
  Report Type: 
  Country: None (occurrence: None)
  Receive Date: 20060911
  Receipt Date: 20060811
  Transmission Date: 20061208
  Serious: Yes (Hospitalization, Other)
  Sender: FDA-Public Use
  Company Number: US-BRISTOL-MYERS SQUIBB COMPANY-13472980

PATIENT
  Age: 63 Year
  Sex: Female

DRUGS (17)
  1. CARDIOLITE [Suspect]
     Indication: CARDIAC STRESS TEST
     Route: 042
     Dates: start: 20060811, end: 20060811
  2. HYDROCHLOROTHIAZIDE [Concomitant]
  3. INSULIN [Concomitant]
  4. FLUOXETINE [Concomitant]
  5. LEVOTHYROXINE SODIUM [Concomitant]
  6. DILTIAZEM HCL [Concomitant]
  7. LISINOPRIL [Concomitant]
  8. ESTROGENS SOL/INJ [Concomitant]
  9. METOPROLOL TARTRATE [Concomitant]
  10. HEPARIN [Concomitant]
  11. ACETAMINOPHEN [Concomitant]
  12. DOCUSATE [Concomitant]
  13. FAMOTIDINE [Concomitant]
  14. DEXAMETHASONE [Concomitant]
  15. PANTOPRAZOLE SODIUM [Concomitant]
  16. ALBUTEROL [Concomitant]
  17. IPRATROPIUM BROMIDE [Concomitant]

REACTIONS (1)
  - SWOLLEN TONGUE [None]
